FAERS Safety Report 8083927-1 (Version None)
Quarter: 2012Q1

REPORT INFORMATION
  Report Type: 
  Country: None (occurrence: None)
  Receive Date: 20120128
  Receipt Date: 20110112
  Transmission Date: 20120608
  Serious: No
  Sender: FDA-Public Use
  Company Number: US-ABBOTT-11P-163-0697223-00

PATIENT
  Age: 29 Year
  Sex: Female

DRUGS (3)
  1. HUMIRA [Suspect]
     Indication: RHEUMATOID ARTHRITIS
     Dates: start: 20101001
  2. PERCOCET [Concomitant]
     Indication: PAIN
     Dosage: 1/2 TABLET TO 1 TABLET AS NEEDED
  3. PREDNISONE TAB [Concomitant]
     Indication: PRODUCT USED FOR UNKNOWN INDICATION
     Dosage: PATIENT TOOK FOR 5 DAYS THEN AS NEED: TOOK FOR 5 DAYS THEN QUIT

REACTIONS (4)
  - PAIN IN EXTREMITY [None]
  - DRUG DOSE OMISSION [None]
  - INJECTION SITE PAIN [None]
  - DRUG INEFFECTIVE [None]
